FAERS Safety Report 23599220 (Version 1)
Quarter: 2024Q1

REPORT INFORMATION
  Report Type: Spontaneous
  Country: DE (occurrence: DE)
  Receive Date: 20240306
  Receipt Date: 20240306
  Transmission Date: 20240410
  Serious: Yes (Other)
  Sender: FDA-Public Use
  Company Number: None

PATIENT
  Sex: Female
  Weight: 93 kg

DRUGS (4)
  1. FULVESTRANT [Suspect]
     Active Substance: FULVESTRANT
     Indication: Breast cancer
     Dosage: 500 MG, Q4W
     Dates: end: 20230123
  2. LETROZOLE [Suspect]
     Active Substance: LETROZOLE
     Indication: Breast cancer metastatic
     Dosage: 2.5 MG, QD (RECENT DOSE ON 28 MAY 2019)
     Dates: start: 20190503
  3. KISQALI [Suspect]
     Active Substance: RIBOCICLIB
     Indication: Breast cancer metastatic
     Dosage: 200 MG, QD, (SCHEME 21 DAYS INTAKE, 7 DAYS BREAK) (RECENT DOSE ON 24-JAN-2023)
  4. KISQALI [Suspect]
     Active Substance: RIBOCICLIB
     Dosage: 200 MG, QD, (SCHEME 21 DAYS INTAKE, 7 DAYS BREAK)
     Dates: start: 20190503, end: 20190528

REACTIONS (5)
  - Right ventricular failure [Not Recovered/Not Resolved]
  - Dyspnoea [Not Recovered/Not Resolved]
  - Renal failure [Not Recovered/Not Resolved]
  - Nausea [Not Recovered/Not Resolved]
  - Joint effusion [Not Recovered/Not Resolved]

NARRATIVE: CASE EVENT DATE: 20191128
